FAERS Safety Report 4785512-3 (Version None)
Quarter: 2005Q4

REPORT INFORMATION
  Report Type: 
  Country: None (occurrence: None)
  Receive Date: 20051003
  Receipt Date: 20050921
  Transmission Date: 20060501
  Serious: Yes (Disabling)
  Sender: FDA-Public Use
  Company Number: GB-JNJFOC-20050905626

PATIENT
  Sex: Male
  Weight: 73 kg

DRUGS (3)
  1. REMICADE [Suspect]
     Indication: PSORIASIS
     Route: 042
  2. DOVOBET [Concomitant]
     Indication: PSORIASIS
     Route: 061
  3. CYCLOSPORINE [Concomitant]
     Route: 048

REACTIONS (1)
  - MONONEUROPATHY MULTIPLEX [None]
